FAERS Safety Report 9513715 (Version 5)
Quarter: 2014Q3

REPORT INFORMATION
  Report Type: Spontaneous
  Country: US (occurrence: US)
  Receive Date: 20130910
  Receipt Date: 20140805
  Transmission Date: 20150326
  Serious: Yes (Hospitalization, Other)
  Sender: FDA-Public Use
  Company Number: US-BAYER-2013-109191

PATIENT
  Age: 25 Year
  Sex: Female
  Weight: 71.66 kg

DRUGS (8)
  1. MIRENA [Suspect]
     Active Substance: LEVONORGESTREL
     Indication: CONTRACEPTION
     Dosage: 20 MCG/24HR, CONT
     Route: 015
     Dates: start: 20080109, end: 20091015
  2. NASACORT [Concomitant]
     Active Substance: TRIAMCINOLONE ACETONIDE
  3. XANAX [Concomitant]
     Active Substance: ALPRAZOLAM
  4. CLARINEX [Concomitant]
     Active Substance: DESLORATADINE
  5. IBUPROFEN. [Concomitant]
     Active Substance: IBUPROFEN
  6. SOMA [Concomitant]
     Active Substance: CARISOPRODOL
  7. MIRENA [Suspect]
     Active Substance: LEVONORGESTREL
     Indication: CONTRACEPTION
     Dosage: UNK
  8. FIORICET [Concomitant]
     Active Substance: ACETAMINOPHEN\BUTALBITAL\CAFFEINE

REACTIONS (9)
  - Device issue [None]
  - Pelvic pain [None]
  - Dyspareunia [None]
  - Device breakage [None]
  - Abdominal pain [None]
  - Emotional distress [None]
  - Genital haemorrhage [None]
  - Injury [None]
  - Uterine perforation [None]

NARRATIVE: CASE EVENT DATE: 2009
